FAERS Safety Report 13265104 (Version 1)
Quarter: 2017Q1

REPORT INFORMATION
  Report Type: Spontaneous
  Country: DE (occurrence: DE)
  Receive Date: 20170223
  Receipt Date: 20170223
  Transmission Date: 20170428
  Serious: Yes (Death, Hospitalization, Other)
  Sender: FDA-Public Use
  Company Number: DE-GLAXOSMITHKLINE-DE2017GSK025351

PATIENT
  Age: 77 Year
  Sex: Male
  Weight: 90 kg

DRUGS (7)
  1. DICLOFENAC [Suspect]
     Active Substance: DICLOFENAC
     Indication: PRODUCT USED FOR UNKNOWN INDICATION
     Route: 048
  2. PREDNISOLONE. [Suspect]
     Active Substance: PREDNISOLONE
     Indication: PRODUCT USED FOR UNKNOWN INDICATION
     Dosage: 5 MG, UNK
     Route: 048
  3. RIVAROXABAN [Concomitant]
     Active Substance: RIVAROXABAN
     Dosage: UNK
     Dates: start: 201506
  4. RIVAROXABAN [Concomitant]
     Active Substance: RIVAROXABAN
     Dosage: UNK
     Dates: start: 201512
  5. PHENPROCOUMON [Concomitant]
     Active Substance: PHENPROCOUMON
     Dosage: UNK
     Dates: start: 201507
  6. XARELTO [Suspect]
     Active Substance: RIVAROXABAN
     Indication: VENOUS THROMBOSIS
     Dosage: 1 DF, UNK
     Route: 048
     Dates: start: 201512
  7. ENOXAPARIN [Concomitant]
     Active Substance: ENOXAPARIN

REACTIONS (20)
  - Haemoglobin decreased [Fatal]
  - Death [Fatal]
  - Fall [Unknown]
  - Venous thrombosis [Unknown]
  - Hypertension [Unknown]
  - Gastrointestinal erosion [Fatal]
  - Gastrointestinal haemorrhage [Unknown]
  - Aortic aneurysm [Unknown]
  - Renal failure [Unknown]
  - Peripheral arterial occlusive disease [Unknown]
  - Melaena [Fatal]
  - Dry gangrene [Fatal]
  - Impaired healing [Fatal]
  - Rheumatoid arthritis [Unknown]
  - Asthenia [Fatal]
  - Ulcer [Fatal]
  - Arterial occlusive disease [Fatal]
  - Femoral neck fracture [Unknown]
  - Cardiac aneurysm [Unknown]
  - Cerebrovascular accident [Unknown]

NARRATIVE: CASE EVENT DATE: 201505
